FAERS Safety Report 24167554 (Version 1)
Quarter: 2024Q3

REPORT INFORMATION
  Report Type: Spontaneous
  Country: DE (occurrence: DE)
  Receive Date: 20240802
  Receipt Date: 20240802
  Transmission Date: 20241016
  Serious: Yes (Hospitalization)
  Sender: CURIUM PHARMACEUTICALS
  Company Number: DE-CISBIO-2024000490

PATIENT
  Age: 61 Year
  Sex: Female

DRUGS (2)
  1. TECHNETIUM TC-99M SESTAMIBI [Suspect]
     Active Substance: TECHNETIUM TC-99M SESTAMIBI
     Indication: Hyperparathyroidism
     Route: 042
     Dates: start: 20240723, end: 20240723
  2. ULTRA-TECHNEKOW FM [Suspect]
     Active Substance: TECHNETIUM TC-99M SODIUM PERTECHNETATE
     Indication: Hyperparathyroidism
     Route: 042
     Dates: start: 20240723, end: 20240723

REACTIONS (3)
  - Hypotension [Recovered/Resolved]
  - Nausea [Recovered/Resolved]
  - Parosmia [Recovered/Resolved]

NARRATIVE: CASE EVENT DATE: 20240723
